FAERS Safety Report 10254947 (Version 1)
Quarter: 2014Q2

REPORT INFORMATION
  Report Type: Spontaneous
  Country: US (occurrence: US)
  Receive Date: 20140624
  Receipt Date: 20140624
  Transmission Date: 20141212
  Serious: Yes (Death, Hospitalization)
  Sender: FDA-Public Use
  Company Number: US-SUN PHARMACEUTICAL INDUSTRIES LTD-2014SUN01367

PATIENT
  Age: 17 Year
  Sex: Female

DRUGS (3)
  1. LITHIUM CARBONATE [Suspect]
     Indication: AFFECTIVE DISORDER
     Route: 065
  2. TOPIRAMATE TABS 25MG [Suspect]
     Indication: AFFECTIVE DISORDER
     Route: 065
  3. 251-NBOME [Suspect]
     Indication: PRODUCT USED FOR UNKNOWN INDICATION
     Route: 048

REACTIONS (12)
  - Serotonin syndrome [Fatal]
  - Status epilepticus [Fatal]
  - Hyperthermia [Fatal]
  - Rhabdomyolysis [Fatal]
  - Multi-organ failure [Fatal]
  - Brain oedema [Fatal]
  - Metabolic acidosis [None]
  - Transaminases increased [None]
  - Renal failure acute [None]
  - Hypokalaemia [None]
  - Hypocalcaemia [None]
  - Brain death [None]
